FAERS Safety Report 7210384-7 (Version None)
Quarter: 2011Q1

REPORT INFORMATION
  Report Type: 
  Country: None (occurrence: None)
  Receive Date: 20110105
  Receipt Date: 20101223
  Transmission Date: 20110831
  Serious: Yes (Other)
  Sender: FDA-Public Use
  Company Number: PHHY2010DE87549

PATIENT
  Age: 44 Year
  Sex: Female

DRUGS (3)
  1. SALAGEN [Suspect]
     Dosage: UNK
     Route: 048
     Dates: start: 20101021
  2. RESOCHIN [Concomitant]
  3. LEVOTHYROXINE SODIUM [Concomitant]

REACTIONS (4)
  - COUGH [None]
  - PNEUMONIA [None]
  - BACK PAIN [None]
  - BLOOD GLUCOSE FLUCTUATION [None]
